FAERS Safety Report 4300967-6 (Version None)
Quarter: 2004Q1

REPORT INFORMATION
  Report Type: 
  Country: None (occurrence: None)
  Receive Date: 20040219
  Receipt Date: 20040204
  Transmission Date: 20041129
  Serious: Yes (Other)
  Sender: FDA-Public Use
  Company Number: US-SHR-04-020947

PATIENT
  Sex: Male
  Weight: 85.1 kg

DRUGS (4)
  1. GM-CSF (SARGRAMOSTIM) INJECTION [Suspect]
     Indication: MYELODYSPLASTIC SYNDROME
     Dosage: 125 UG/M2/DX14Q28D, SUBCUTANEOUS
     Route: 058
     Dates: start: 20040113, end: 20040203
  2. BRYOSTATIN I (BRYOSTATIN I) [Suspect]
     Indication: MYELODYSPLASTIC SYNDROME
     Dosage: 18 UG/M2/DX14DQ28DAYS, INTRAVENOUS
     Route: 042
     Dates: start: 20040113, end: 20040203
  3. LIPITOR [Suspect]
     Dosage: ORAL
     Route: 048
     Dates: end: 20040203
  4. QUININE (QUININE) [Suspect]
     Dosage: ORAL
     Route: 048
     Dates: end: 20040203

REACTIONS (6)
  - ARTHRALGIA [None]
  - DIARRHOEA [None]
  - INFLUENZA LIKE ILLNESS [None]
  - MYALGIA [None]
  - MYOSITIS [None]
  - PAIN [None]
